FAERS Safety Report 4423129-0 (Version None)
Quarter: 2004Q3

REPORT INFORMATION
  Report Type: 
  Country: None (occurrence: None)
  Receive Date: 20040805
  Receipt Date: 20040723
  Transmission Date: 20050211
  Serious: Yes (Hospitalization)
  Sender: FDA-Public Use
  Company Number: US-JNJFOC-20040706663

PATIENT
  Age: 79 Year
  Sex: Female

DRUGS (8)
  1. INFLIXIMAB (INFLIXIMAB, RECOMBINANT) LYOPHILIZED POWDER [Suspect]
     Indication: RHEUMATOID ARTHRITIS
     Dosage: 1 IN 8 WEEK, INTRAVENOUS
     Route: 042
     Dates: start: 20000719
  2. METHOTREXATE SODIUM [Concomitant]
  3. FOSAMAX [Concomitant]
  4. PREDNISONE [Concomitant]
  5. SALSALATE (SALSALATE) [Concomitant]
  6. NORVASC [Concomitant]
  7. NORVASC [Concomitant]
  8. COUMADIN [Concomitant]

REACTIONS (3)
  - CELLULITIS [None]
  - POLYCYTHAEMIA VERA [None]
  - THROMBOPHLEBITIS [None]
